FAERS Safety Report 18769749 (Version 3)
Quarter: 2022Q3

REPORT INFORMATION
  Report Type: Spontaneous
  Country: FR (occurrence: FR)
  Receive Date: 20210121
  Receipt Date: 20220818
  Transmission Date: 20221027
  Serious: Yes (Death, Life-Threatening, Other)
  Sender: FDA-Public Use
  Company Number: FR-MYLANLABS-2021M1003973

PATIENT
  Age: 57 Year
  Sex: Male
  Weight: 58 kg

DRUGS (3)
  1. SILDENAFIL [Suspect]
     Active Substance: SILDENAFIL
     Indication: Product used for unknown indication
     Dosage: UNK
     Route: 065
  2. NEVIRAPINE [Suspect]
     Active Substance: NEVIRAPINE
     Indication: HIV infection
     Dosage: UNK
     Route: 065
  3. BROMAZEPAM [Suspect]
     Active Substance: BROMAZEPAM
     Indication: Product used for unknown indication
     Dosage: UNK
     Route: 065

REACTIONS (11)
  - Toxicity to various agents [Fatal]
  - Hypoxia [Fatal]
  - Cyanosis [Fatal]
  - Conjunctival hyperaemia [Fatal]
  - Petechiae [Fatal]
  - Pulmonary oedema [Fatal]
  - Left ventricular dilatation [Fatal]
  - Hepatic steatosis [Fatal]
  - Congestive hepatopathy [Fatal]
  - Multi-organ disorder [Fatal]
  - Cardiac disorder [Fatal]
